FAERS Safety Report 14011631 (Version 1)
Quarter: 2017Q3

REPORT INFORMATION
  Report Type: Spontaneous
  Country: US (occurrence: US)
  Receive Date: 20170926
  Receipt Date: 20170926
  Transmission Date: 20171128
  Serious: No
  Sender: FDA-Public Use
  Company Number: None

PATIENT
  Age: 85 Year
  Sex: Male
  Weight: 101.25 kg

DRUGS (4)
  1. STRIVERDI RESPIMAT [Suspect]
     Active Substance: OLODATEROL HYDROCHLORIDE
     Indication: DYSPNOEA
     Dosage: QUANTITY:2 PUFF(S);?
     Route: 048
     Dates: start: 20160302, end: 20160310
  2. VITAMIN D [Concomitant]
     Active Substance: CHOLECALCIFEROL
  3. GLYBERIDE [Concomitant]
  4. CYANOCOBALAMIN. [Concomitant]
     Active Substance: CYANOCOBALAMIN

REACTIONS (2)
  - Alopecia [None]
  - Skin exfoliation [None]

NARRATIVE: CASE EVENT DATE: 20160310
